FAERS Safety Report 9656906 (Version 2)
Quarter: 2013Q4

REPORT INFORMATION
  Report Type: Spontaneous
  Country: LU (occurrence: LU)
  Receive Date: 20131030
  Receipt Date: 20131218
  Transmission Date: 20140711
  Serious: Yes (Hospitalization)
  Sender: FDA-Public Use
  Company Number: LU-B.I. PHARMACEUTICALS,INC./RIDGEFIELD-2013-BI-33901BL

PATIENT
  Age: 75 Year
  Sex: Male
  Weight: 90 kg

DRUGS (7)
  1. PRADAXA [Suspect]
     Indication: ATRIAL FIBRILLATION
     Dosage: 220 MG
     Route: 048
     Dates: start: 20131010
  2. CORDARONE [Suspect]
     Indication: DIABETES MELLITUS
     Dosage: 200 NR
     Route: 048
  3. CORDARONE [Concomitant]
     Indication: DIABETES MELLITUS
  4. LANTUS SOLOSTAR [Concomitant]
     Route: 058
  5. DOMINAL FORTE [Concomitant]
     Dosage: NO. OF APPLICATION 1/2 24 HOURS,
     Route: 048
  6. REMERGON [Concomitant]
     Dosage: 15 MG
     Route: 048
  7. CONCOR [Concomitant]
     Dosage: 1/2 24 HOURS
     Route: 048

REACTIONS (4)
  - Chest pain [Recovered/Resolved]
  - Myocardial infarction [Unknown]
  - Bronchopneumopathy [Unknown]
  - Inflammation [Unknown]
